FAERS Safety Report 8390400 (Version 6)
Quarter: 2013Q2

REPORT INFORMATION
  Report Type: Spontaneous
  Country: US (occurrence: US)
  Receive Date: 20120203
  Receipt Date: 20130417
  Transmission Date: 20140414
  Serious: Yes (Other)
  Sender: FDA-Public Use
  Company Number: US-ASTRAZENECA-2010SE19888

PATIENT
  Age: 56 Year
  Sex: Female

DRUGS (3)
  1. NEXIUM [Suspect]
     Route: 048
  2. ZANTAC [Suspect]
     Route: 065
  3. ALEVE [Concomitant]

REACTIONS (28)
  - Ulcer haemorrhage [Unknown]
  - Cartilage injury [Unknown]
  - Visual acuity reduced [Unknown]
  - Pharyngeal ulceration [Unknown]
  - Small intestinal obstruction [Unknown]
  - Oesophageal ulcer [Unknown]
  - Small intestine ulcer [Unknown]
  - Dyspepsia [Unknown]
  - Arthropathy [Unknown]
  - Anaemia [Unknown]
  - Arthritis [Unknown]
  - Blood cholesterol abnormal [Unknown]
  - Psoriasis [Unknown]
  - Dry eye [Unknown]
  - Lacrimal structural disorder [Unknown]
  - Eye infection [Unknown]
  - Bone loss [Unknown]
  - Swelling [Unknown]
  - Multiple allergies [Unknown]
  - Gastrooesophageal reflux disease [Unknown]
  - Dyspepsia [Unknown]
  - Regurgitation [Unknown]
  - Malaise [Unknown]
  - Middle insomnia [Unknown]
  - Vomiting [Unknown]
  - Dyspepsia [Unknown]
  - Aphagia [Unknown]
  - Drug dose omission [Unknown]
